FAERS Safety Report 12514488 (Version 1)
Quarter: 2016Q2

REPORT INFORMATION
  Report Type: Spontaneous
  Country: US (occurrence: None)
  Receive Date: 20160629
  Receipt Date: 20160629
  Transmission Date: 20160815
  Serious: Yes (Life-Threatening, Hospitalization)
  Sender: FDA-Public Use
  Company Number: None

PATIENT
  Age: 61 Year
  Sex: Male

DRUGS (3)
  1. CLOZAPINE. [Suspect]
     Active Substance: CLOZAPINE
     Indication: SCHIZOPHRENIA
     Route: 048
     Dates: start: 20151105, end: 20151116
  2. FLUPHENAZINE [Concomitant]
     Active Substance: FLUPHENAZINE
  3. CLONAZEPAM. [Concomitant]
     Active Substance: CLONAZEPAM

REACTIONS (4)
  - CYP2D6 polymorphism [None]
  - Tachycardia [None]
  - Pyrexia [None]
  - Dehydration [None]

NARRATIVE: CASE EVENT DATE: 20151116
